FAERS Safety Report 5136952-4 (Version None)
Quarter: 2006Q4

REPORT INFORMATION
  Report Type: 
  Country: None (occurrence: None)
  Receive Date: 20061023
  Receipt Date: 20061010
  Transmission Date: 20070319
  Serious: Yes (Other)
  Sender: FDA-Public Use
  Company Number: 2006101721

PATIENT
  Age: 35 Year
  Sex: Female
  Weight: 76 kg

DRUGS (9)
  1. GENOTROPIN [Suspect]
     Indication: GROWTH HORMONE DEFICIENCY
     Dosage: 0.4 MG (0.4 MG, 1 IN 1D),SUBCUTANEOUS
     Route: 058
     Dates: start: 20050801, end: 20060701
  2. DESMOPRESSIN ACETATE (DESMOPRESSIN ACETATE) [Concomitant]
  3. HYDROCORTISONE [Concomitant]
  4. FENOFIBRATE [Concomitant]
  5. ESTRADIOL (HEMIHYDRATE (ESTRADIOL) [Concomitant]
  6. PROGESTERONE [Concomitant]
  7. ZOLPIDEM TARTRATE [Concomitant]
  8. BROMAZEPAM (BROMAZEPAM) [Concomitant]
  9. PANTOPRAZOLE SODIUM [Concomitant]

REACTIONS (2)
  - CRANIOPHARYNGIOMA [None]
  - NEOPLASM RECURRENCE [None]
